FAERS Safety Report 8166422-0 (Version None)
Quarter: 2012Q1

REPORT INFORMATION
  Report Type: 
  Country: None (occurrence: None)
  Receive Date: 20120227
  Receipt Date: 20110729
  Transmission Date: 20120608
  Serious: No
  Sender: FDA-Public Use
  Company Number: US-MYLANLABS-2011S1015613

PATIENT
  Age: 17 Year
  Sex: Male

DRUGS (2)
  1. AMNESTEEM [Suspect]
     Indication: ACNE
     Route: 048
     Dates: start: 20110519, end: 20110621
  2. AMNESTEEM [Suspect]
     Route: 048
     Dates: start: 20110621, end: 20110629

REACTIONS (2)
  - DEPRESSION [None]
  - FATIGUE [None]
